FAERS Safety Report 4651468-7 (Version None)
Quarter: 2005Q2

REPORT INFORMATION
  Report Type: 
  Country: None (occurrence: None)
  Receive Date: 20050502
  Receipt Date: 20050418
  Transmission Date: 20051028
  Serious: Yes (Other)
  Sender: FDA-Public Use
  Company Number: 2005064575

PATIENT
  Age: 72 Year
  Sex: Female

DRUGS (5)
  1. BEXTRA [Suspect]
     Indication: MENISCUS LESION
     Dosage: 20 MG (20 MG, 1 IN 1 D)
     Dates: start: 20040101, end: 20040801
  2. EZETIMIBE (EZETIMIBE) [Suspect]
     Indication: BLOOD CHOLESTEROL INCREASED
     Dates: start: 20040101
  3. CELECOXIB (CELECOXIB) [Concomitant]
  4. ATORVASTATIN CALCIUM [Concomitant]
  5. FLECAINIDE ACETATE [Concomitant]

REACTIONS (5)
  - ARTHRALGIA [None]
  - CONDITION AGGRAVATED [None]
  - DRUG EFFECT DECREASED [None]
  - SYSTEMIC LUPUS ERYTHEMATOSUS [None]
  - VASCULITIS [None]
